FAERS Safety Report 25919302 (Version 1)
Quarter: 2025Q4

REPORT INFORMATION
  Report Type: Spontaneous
  Country: CA (occurrence: None)
  Receive Date: 20251013
  Receipt Date: 20251013
  Transmission Date: 20260118
  Serious: Yes (Disabling)
  Sender: FDA-CTU
  Company Number: None

PATIENT
  Age: 29 Year
  Sex: Male
  Weight: 81 kg

DRUGS (1)
  1. ESCITALOPRAM [Suspect]
     Active Substance: ESCITALOPRAM OXALATE
     Indication: Anxiety

REACTIONS (6)
  - Initial insomnia [None]
  - Organic erectile dysfunction [None]
  - Loss of libido [None]
  - Erectile dysfunction [None]
  - Diarrhoea [None]
  - Penile size reduced [None]

NARRATIVE: CASE EVENT DATE: 20220923
